FAERS Safety Report 10363474 (Version 3)
Quarter: 2014Q3

REPORT INFORMATION
  Report Type: Spontaneous
  Country: JP (occurrence: JP)
  Receive Date: 20140805
  Receipt Date: 20140908
  Transmission Date: 20150326
  Serious: Yes (Hospitalization)
  Sender: FDA-Public Use
  Company Number: JP-GLAXOSMITHKLINE-B1019889A

PATIENT
  Age: 82 Year
  Sex: Male
  Weight: 53 kg

DRUGS (5)
  1. METHYCOBAL [Concomitant]
     Active Substance: METHYLCOBALAMIN
     Indication: HERPES ZOSTER
     Dosage: 500MCG THREE TIMES PER DAY
     Route: 048
  2. ZOVIRAX [Suspect]
     Active Substance: ACYCLOVIR
     Indication: HERPES ZOSTER
     Dosage: 200MG THREE TIMES PER DAY
     Route: 048
  3. METILDIGOXIN [Concomitant]
     Active Substance: METILDIGOXIN
     Indication: CARDIAC FAILURE CHRONIC
     Dosage: .1MCG PER DAY
     Route: 048
  4. UNKNOWN DRUG [Concomitant]
     Active Substance: UNSPECIFIED INGREDIENT
     Dosage: 100MG PER DAY
     Route: 048
  5. FUROSEMIDE. [Concomitant]
     Active Substance: FUROSEMIDE
     Dosage: 40MG PER DAY
     Route: 048

REACTIONS (7)
  - Blood urea increased [Unknown]
  - Blood creatinine increased [Unknown]
  - Fall [Unknown]
  - Decreased appetite [Recovered/Resolved]
  - Altered state of consciousness [Recovering/Resolving]
  - Blood potassium increased [Unknown]
  - Renal failure acute [Recovered/Resolved]
